FAERS Safety Report 6069694-1 (Version None)
Quarter: 2009Q1

REPORT INFORMATION
  Report Type: 
  Country: None (occurrence: None)
  Receive Date: 20090209
  Receipt Date: 20090204
  Transmission Date: 20090719
  Serious: Yes (Life-Threatening)
  Sender: FDA-Public Use
  Company Number: PHHY2008JP32936

PATIENT
  Sex: Female
  Weight: 64 kg

DRUGS (8)
  1. DIOVAN [Suspect]
     Indication: HYPERTENSION
     Dosage: 80 MG, ONCE/SINGLE
     Route: 048
     Dates: start: 20070925, end: 20071216
  2. DIOVAN [Suspect]
     Dosage: 80 MG, BID
     Route: 048
     Dates: start: 20071217, end: 20080921
  3. DIOVAN [Suspect]
     Dosage: 80 MG, ONCE/SINGLE
     Route: 048
     Dates: start: 20081107
  4. NATRIX [Concomitant]
     Indication: HYPERTENSION
     Dosage: 1 MG, UNK
     Route: 048
     Dates: start: 20071009
  5. CRESTOR [Concomitant]
     Dosage: 2.5 MG, UNK
     Dates: start: 20070925, end: 20080921
  6. STARSIS [Concomitant]
     Dosage: 90 MG, UNK
     Route: 048
     Dates: start: 20080502, end: 20080615
  7. AMARYL [Concomitant]
     Dosage: 2 MG, UNK
     Route: 048
     Dates: start: 20080616, end: 20080912
  8. PLAVIX [Concomitant]
     Indication: CAROTID ARTERIOSCLEROSIS
     Dosage: 75 MG, UNK
     Route: 048
     Dates: start: 20080908

REACTIONS (4)
  - ANAEMIA [None]
  - BLOOD GLUCOSE INCREASED [None]
  - CHRONIC MYELOMONOCYTIC LEUKAEMIA [None]
  - DIABETES MELLITUS [None]
